FAERS Safety Report 4618980-8 (Version None)
Quarter: 2005Q1

REPORT INFORMATION
  Report Type: 
  Country: None (occurrence: None)
  Receive Date: 20050325
  Receipt Date: 20041216
  Transmission Date: 20050727
  Serious: Yes (Hospitalization, Other)
  Sender: FDA-Public Use
  Company Number: JP-ABBOTT-04P-087-0284110-00

PATIENT
  Age: 50 Year
  Sex: Male

DRUGS (10)
  1. KALETRA [Suspect]
     Indication: HIV INFECTION
  2. KALETRA [Suspect]
     Indication: PROGRESSIVE MULTIFOCAL LEUKOENCEPHALOPATHY
  3. ZIDOVUDINE [Suspect]
     Indication: HIV INFECTION
  4. ZIDOVUDINE [Suspect]
  5. DIDANOSINE [Suspect]
     Indication: HIV INFECTION
  6. DIDANOSINE [Suspect]
  7. LAMIVUDINE [Concomitant]
     Indication: HIV INFECTION
  8. LAMIVUDINE [Concomitant]
     Indication: PROGRESSIVE MULTIFOCAL LEUKOENCEPHALOPATHY
  9. PREDNISOLONE [Concomitant]
     Indication: DRUG USE FOR UNKNOWN INDICATION
  10. PREDNISOLONE [Concomitant]
     Dosage: GRADUALLY DECREASED

REACTIONS (3)
  - CONDITION AGGRAVATED [None]
  - HEMIPLEGIA [None]
  - PROGRESSIVE MULTIFOCAL LEUKOENCEPHALOPATHY [None]
